FAERS Safety Report 11239727 (Version 1)
Quarter: 2015Q3

REPORT INFORMATION
  Report Type: Spontaneous
  Country: US (occurrence: None)
  Receive Date: 20150701
  Receipt Date: 20150701
  Transmission Date: 20151125
  Serious: No
  Sender: FDA-Public Use
  Company Number: None

PATIENT

DRUGS (2)
  1. CALCIUM GLUCONATE. [Suspect]
     Active Substance: CALCIUM GLUCONATE
     Dosage: INJECTABLE; 10%, SINGLE DOSE VIAL
     Route: 042
  2. STERILE WATER FOR INJECTION [Suspect]
     Active Substance: WATER
     Dosage: SINGLE DOSE VIAL
     Route: 042

REACTIONS (3)
  - Product quality issue [None]
  - Product container issue [None]
  - Circumstance or information capable of leading to medication error [None]
